FAERS Safety Report 11745487 (Version 1)
Quarter: 2015Q4

REPORT INFORMATION
  Report Type: Spontaneous
  Country: US (occurrence: None)
  Receive Date: 20151116
  Receipt Date: 20151116
  Transmission Date: 20160304
  Serious: No
  Sender: FDA-Public Use
  Company Number: None

PATIENT
  Sex: Male

DRUGS (1)
  1. HUMIRA [Suspect]
     Active Substance: ADALIMUMAB
     Dosage: Q2W
     Route: 058
     Dates: start: 20150724

REACTIONS (3)
  - Bradyphrenia [None]
  - Rectal haemorrhage [None]
  - Muscular weakness [None]
